FAERS Safety Report 7075361-8 (Version None)
Quarter: 2010Q4

REPORT INFORMATION
  Report Type: 
  Country: None (occurrence: None)
  Receive Date: 20101030
  Receipt Date: 20100830
  Transmission Date: 20110411
  Serious: No
  Sender: FDA-Public Use
  Company Number: US-WYE-H17258110

PATIENT
  Sex: Male

DRUGS (7)
  1. TYGACIL [Suspect]
     Indication: DIABETIC FOOT
     Route: 065
  2. TYGACIL [Suspect]
     Indication: STAPHYLOCOCCAL INFECTION
  3. HUMULIN 70/30 [Concomitant]
  4. LASIX [Concomitant]
  5. CALCET [Concomitant]
  6. LOTREL [Concomitant]
  7. LIPITOR [Concomitant]

REACTIONS (1)
  - PATHOGEN RESISTANCE [None]
